FAERS Safety Report 5039448-3 (Version None)
Quarter: 2006Q2

REPORT INFORMATION
  Report Type: 
  Country: None (occurrence: None)
  Receive Date: 20060629
  Receipt Date: 20060615
  Transmission Date: 20061013
  Serious: Yes (Other)
  Sender: FDA-Public Use
  Company Number: PHBS2006VE09128

PATIENT
  Sex: Female

DRUGS (2)
  1. ZOMETA [Suspect]
     Route: 042
  2. FEMARA [Suspect]
     Dosage: 2.5 MG/D
     Route: 048

REACTIONS (1)
  - POLYNEUROPATHY [None]
